FAERS Safety Report 8236019-2 (Version None)
Quarter: 2012Q1

REPORT INFORMATION
  Report Type: 
  Country: None (occurrence: None)
  Receive Date: 20120326
  Receipt Date: 20120316
  Transmission Date: 20120608
  Serious: Yes (Other)
  Sender: FDA-Public Use
  Company Number: US-ASTRAZENECA-2011SE54870

PATIENT
  Age: 55 Year
  Sex: Male

DRUGS (2)
  1. LORTAB [Concomitant]
     Dosage: 7.5/500 IN 15 ML, 10 ML Q.6 HOURS
     Route: 065
  2. TOPROL-XL [Suspect]
     Route: 048

REACTIONS (19)
  - OESOPHAGEAL CARCINOMA [None]
  - PNEUMONIA [None]
  - SPUTUM DISCOLOURED [None]
  - FLATULENCE [None]
  - DIARRHOEA [None]
  - HAEMORRHOIDAL HAEMORRHAGE [None]
  - WEIGHT INCREASED [None]
  - COUGH [None]
  - HYPERHIDROSIS [None]
  - PAIN THRESHOLD DECREASED [None]
  - INCREASED UPPER AIRWAY SECRETION [None]
  - WEIGHT DECREASED [None]
  - GASTROOESOPHAGEAL REFLUX DISEASE [None]
  - PROCEDURAL PAIN [None]
  - OESOPHAGITIS ULCERATIVE [None]
  - CONSTIPATION [None]
  - DYSPHONIA [None]
  - PYREXIA [None]
  - CHILLS [None]
